FAERS Safety Report 6244481-X (Version None)
Quarter: 2009Q2

REPORT INFORMATION
  Report Type: 
  Country: None (occurrence: None)
  Receive Date: 20090625
  Receipt Date: 20090618
  Transmission Date: 20091009
  Serious: Yes (Other)
  Sender: FDA-Public Use
  Company Number: CA-ASTRAZENECA-2009UW16671

PATIENT
  Age: 75 Year
  Sex: Female

DRUGS (9)
  1. TENORMIN [Suspect]
     Route: 048
     Dates: start: 20090617
  2. LIPITOR [Concomitant]
  3. ADVAIR DISKUS 100/50 [Concomitant]
  4. ATIVAN [Concomitant]
  5. SENOKOT [Concomitant]
  6. XALATAN [Concomitant]
  7. NITROLINGUAL PUMP [Concomitant]
  8. RESTORIL [Concomitant]
  9. CATAPRES [Concomitant]

REACTIONS (2)
  - EPILEPSY [None]
  - VISION BLURRED [None]
